FAERS Safety Report 5495694-6 (Version None)
Quarter: 2007Q4

REPORT INFORMATION
  Report Type: 
  Country: None (occurrence: None)
  Receive Date: 20071025
  Receipt Date: 20071015
  Transmission Date: 20080405
  Serious: Yes (Hospitalization, Other)
  Sender: FDA-Public Use
  Company Number: US-JNJFOC-20070406075

PATIENT
  Sex: Female
  Weight: 95.26 kg

DRUGS (12)
  1. DURAGESIC-100 [Suspect]
     Indication: PAIN
     Route: 062
  2. NEURONTIN [Concomitant]
     Route: 048
  3. ATENOLOL [Concomitant]
     Route: 048
  4. HYDROCHLOROTHIAZIDE [Concomitant]
     Route: 048
  5. NAPROXEN [Concomitant]
     Indication: PAIN
     Route: 048
  6. VYTORIN [Concomitant]
     Route: 048
  7. ACCUPRIL [Concomitant]
     Route: 048
  8. VICODIN ES [Concomitant]
     Route: 048
  9. LANTUS [Concomitant]
  10. NOVOLOG [Concomitant]
  11. METFORMIN [Concomitant]
  12. QUINAPRIL HCL [Concomitant]

REACTIONS (6)
  - CARDIAC DISORDER [None]
  - CELLULITIS [None]
  - DIABETES MELLITUS [None]
  - EXPIRED DRUG ADMINISTERED [None]
  - HOSPITALISATION [None]
  - WRONG TECHNIQUE IN DRUG USAGE PROCESS [None]
